FAERS Safety Report 16740494 (Version 7)
Quarter: 2019Q4

REPORT INFORMATION
  Report Type: Spontaneous
  Country: US (occurrence: US)
  Receive Date: 20190826
  Receipt Date: 20191111
  Transmission Date: 20200122
  Serious: No
  Sender: FDA-Public Use
  Company Number: US-PFIZER INC-2019361760

PATIENT
  Age: 71 Year
  Sex: Female
  Weight: 83.91 kg

DRUGS (5)
  1. HYDROCODONE [Concomitant]
     Active Substance: HYDROCODONE
     Indication: PAIN
     Dosage: UNK, TWICE DAILY
  2. LYRICA [Suspect]
     Active Substance: PREGABALIN
     Indication: PAIN
  3. HYDROCODONE [Concomitant]
     Active Substance: HYDROCODONE
     Indication: FIBROMYALGIA
     Dosage: 325 MG, AS NEEDED
  4. LYRICA [Suspect]
     Active Substance: PREGABALIN
     Indication: SPINAL STENOSIS
  5. LYRICA [Suspect]
     Active Substance: PREGABALIN
     Indication: FIBROMYALGIA
     Dosage: 200 MG, TWICE DAILY (EARLY IN THE MORNING AND AT NIGHTTIME)
     Route: 048

REACTIONS (6)
  - Hypoacusis [Unknown]
  - Hyperhidrosis [Unknown]
  - Speech disorder [Unknown]
  - Product dose omission [Unknown]
  - Nasopharyngitis [Unknown]
  - Drug ineffective [Unknown]
